FAERS Safety Report 5760117-6 (Version None)
Quarter: 2008Q2

REPORT INFORMATION
  Report Type: 
  Country: None (occurrence: None)
  Receive Date: 20080605
  Receipt Date: 20080604
  Transmission Date: 20081010
  Serious: Yes (Hospitalization)
  Sender: FDA-Public Use
  Company Number: US-BOEHRINGER INGELHEIM GMBH, GERMANY-2008-BP-08722RO

PATIENT
  Sex: Male
  Weight: 84 kg

DRUGS (1)
  1. DEXAMETHASONE TAB [Suspect]
     Route: 048
     Dates: end: 20060125

REACTIONS (2)
  - MENTAL STATUS CHANGES [None]
  - PNEUMONIA [None]
